FAERS Safety Report 16148768 (Version 2)
Quarter: 2020Q2

REPORT INFORMATION
  Report Type: Report from Study
  Country: CA (occurrence: CA)
  Receive Date: 20190402
  Receipt Date: 20200527
  Transmission Date: 20200713
  Serious: Yes (Hospitalization, Other)
  Sender: FDA-Public Use
  Company Number: CA-JNJFOC-20180929586

PATIENT
  Age: 42 Year
  Sex: Male
  Weight: 68.5 kg

DRUGS (2)
  1. REMICADE [Suspect]
     Active Substance: INFLIXIMAB
     Route: 042
  2. REMICADE [Suspect]
     Active Substance: INFLIXIMAB
     Indication: CROHN^S DISEASE
     Route: 042
     Dates: start: 20120227

REACTIONS (10)
  - Gastrectomy [Unknown]
  - Ileostomy [Unknown]
  - Tooth abscess [Not Recovered/Not Resolved]
  - Crohn^s disease [Not Recovered/Not Resolved]
  - Gastroenterostomy [Unknown]
  - Therapeutic response decreased [Unknown]
  - Hidradenitis [Not Recovered/Not Resolved]
  - Gastrointestinal fistula [Unknown]
  - Colectomy total [Unknown]
  - Infection [Not Recovered/Not Resolved]

NARRATIVE: CASE EVENT DATE: 2018
